FAERS Safety Report 11834487 (Version 1)
Quarter: 2015Q4

REPORT INFORMATION
  Report Type: Spontaneous
  Country: US (occurrence: US)
  Receive Date: 20151214
  Receipt Date: 20151214
  Transmission Date: 20160305
  Serious: Yes (Hospitalization)
  Sender: FDA-Public Use
  Company Number: US-JNJFOC-20151107662

PATIENT
  Sex: Female

DRUGS (1)
  1. XARELTO [Suspect]
     Active Substance: RIVAROXABAN
     Indication: OVARIAN VEIN THROMBOSIS
     Route: 048

REACTIONS (9)
  - Pain [Unknown]
  - Bacterial vaginosis [Unknown]
  - Off label use of device [Unknown]
  - Menorrhagia [Not Recovered/Not Resolved]
  - Ovarian vein thrombosis [Unknown]
  - Liver disorder [Unknown]
  - Ovarian cyst [Unknown]
  - Fatigue [Not Recovered/Not Resolved]
  - Asthenia [Not Recovered/Not Resolved]

NARRATIVE: CASE EVENT DATE: 20130804
